FAERS Safety Report 10197041 (Version 1)
Quarter: 2014Q2

REPORT INFORMATION
  Report Type: Spontaneous
  Country: US (occurrence: US)
  Receive Date: 20140527
  Receipt Date: 20140527
  Transmission Date: 20141212
  Serious: No
  Sender: FDA-Public Use
  Company Number: US-009507513-1405USA003787

PATIENT
  Sex: Male

DRUGS (1)
  1. COPPERTONE SPORT CONTINOUS SPRAY SPF 50 [Suspect]
     Indication: PRODUCT USED FOR UNKNOWN INDICATION
     Dosage: UNK, UNKNOWN
     Route: 061
     Dates: start: 201404

REACTIONS (2)
  - Burning sensation [Unknown]
  - Product odour abnormal [Unknown]
